FAERS Safety Report 19996144 (Version 3)
Quarter: 2021Q4

REPORT INFORMATION
  Report Type: Spontaneous
  Country: US (occurrence: US)
  Receive Date: 20211026
  Receipt Date: 20211112
  Transmission Date: 20220303
  Serious: Yes (Disabling, Other)
  Sender: FDA-Public Use
  Company Number: US-SANOFI-00820697

PATIENT
  Age: 69 Year
  Sex: Female

DRUGS (2)
  1. LANTUS SOLOSTAR [Suspect]
     Active Substance: INSULIN GLARGINE
     Indication: Type 2 diabetes mellitus
     Dosage: 50 IU, QD
     Route: 003
  2. VICTOZA [Concomitant]
     Active Substance: LIRAGLUTIDE
     Dosage: VICTOZA IN THE MORNING
     Route: 065

REACTIONS (5)
  - Blindness [Recovering/Resolving]
  - Frustration tolerance decreased [Unknown]
  - Product storage error [Unknown]
  - Wrong technique in product usage process [Unknown]
  - Incorrect route of product administration [Unknown]
